FAERS Safety Report 9921199 (Version 1)
Quarter: 2014Q1

REPORT INFORMATION
  Report Type: Report from Study
  Country: US (occurrence: US)
  Receive Date: 20140225
  Receipt Date: 20140225
  Transmission Date: 20141002
  Serious: Yes (Death)
  Sender: FDA-Public Use
  Company Number: US-ROCHE-1354847

PATIENT
  Age: 50 Year
  Sex: Female
  Weight: 49.3 kg

DRUGS (8)
  1. AVASTIN [Suspect]
     Indication: MALIGNANT MELANOMA
     Dosage: 570 MG
     Route: 042
     Dates: start: 20110208
  2. ALOXI [Concomitant]
     Route: 042
     Dates: start: 20110208
  3. BENADRYL (UNITED STATES) [Concomitant]
     Route: 042
     Dates: start: 20110208
  4. DECADRON [Concomitant]
     Route: 042
     Dates: start: 20110208
  5. PEPCID [Concomitant]
     Route: 042
     Dates: start: 20110208
  6. TAXOL [Concomitant]
     Route: 042
     Dates: start: 20110208
  7. CARBOPLATIN [Concomitant]
     Route: 042
     Dates: start: 20110208
  8. CARBOPLATIN [Concomitant]
     Route: 042

REACTIONS (1)
  - Death [Fatal]
